FAERS Safety Report 9714733 (Version 2)
Quarter: 2014Q1

REPORT INFORMATION
  Report Type: Spontaneous
  Country: GB (occurrence: GB)
  Receive Date: 20131126
  Receipt Date: 20140319
  Transmission Date: 20141002
  Serious: Yes (Other)
  Sender: FDA-Public Use
  Company Number: GB-ABBVIE-13P-167-1173138-00

PATIENT
  Age: 41 Year
  Sex: Female
  Weight: 56.2 kg

DRUGS (3)
  1. HUMIRA [Suspect]
     Indication: CROHN^S DISEASE
     Route: 058
     Dates: start: 2012, end: 201304
  2. HUMIRA [Suspect]
     Route: 058
     Dates: start: 201309, end: 201310
  3. HUMIRA [Suspect]
     Route: 058
     Dates: start: 20140118

REACTIONS (2)
  - VIIth nerve paralysis [Recovered/Resolved]
  - Anal abscess [Unknown]
